FAERS Safety Report 6730005-7 (Version None)
Quarter: 2010Q2

REPORT INFORMATION
  Report Type: 
  Country: None (occurrence: None)
  Receive Date: 20100513
  Receipt Date: 20100430
  Transmission Date: 20101027
  Serious: Yes (Hospitalization, Other)
  Sender: FDA-Public Use
  Company Number: 009753

PATIENT
  Sex: Female

DRUGS (5)
  1. CERTOLIZUMAB PEGOL (CERTOLIZUMAB PEGOL) [Suspect]
     Indication: RHEUMATOID ARTHRITIS
     Dosage: (200 MG 1X/2 WEEKS SUBCUTANEOUS)
     Route: 058
     Dates: start: 20090820
  2. REBAMIPIDE [Concomitant]
  3. DICLOFENAC SODIUM [Concomitant]
  4. INDOMETHACIN SODIUM [Concomitant]
  5. KETOPROFEN [Concomitant]

REACTIONS (2)
  - BONE PAIN [None]
  - LUMBAR SPINAL STENOSIS [None]
